FAERS Safety Report 15592391 (Version 1)
Quarter: 2018Q4

REPORT INFORMATION
  Report Type: Spontaneous
  Country: GB (occurrence: GB)
  Receive Date: 20181106
  Receipt Date: 20181106
  Transmission Date: 20190205
  Serious: Yes (Hospitalization)
  Sender: FDA-Public Use
  Company Number: GB-BAYER-2018-201634

PATIENT
  Age: 77 Year
  Sex: Female
  Weight: 50 kg

DRUGS (17)
  1. GENTAMICIN. [Concomitant]
     Active Substance: GENTAMICIN
     Indication: DIVERTICULITIS
     Dosage: UNK
     Route: 042
  2. POTASSIUM [POTASSIUM BICARBONATE,POTASSIUM CHLORIDE] [Concomitant]
     Dosage: UNK
  3. LEVOTHYROXINE. [Concomitant]
     Active Substance: LEVOTHYROXINE
     Dosage: UNK
  4. TEICOPLANIN [Concomitant]
     Active Substance: TEICOPLANIN
     Indication: DIVERTICULITIS
     Dosage: UNK
     Route: 042
  5. CYCLIZINE [Concomitant]
     Active Substance: CYCLIZINE
     Dosage: UNK
  6. METOCLOPRAMIDE. [Concomitant]
     Active Substance: METOCLOPRAMIDE
     Dosage: UNK
  7. RAMIPRIL. [Concomitant]
     Active Substance: RAMIPRIL
     Dosage: UNK
  8. HYOSCINE BUTYLBROMIDE [Concomitant]
     Active Substance: BUTYLSCOPOLAMINE
     Dosage: UNK
  9. SIMVASTATIN. [Concomitant]
     Active Substance: SIMVASTATIN
     Dosage: UNK
  10. CIPROXIN 500 MG [Suspect]
     Active Substance: CIPROFLOXACIN
     Indication: DIVERTICULITIS
     Dosage: 500MG TWICE A DAY 12 HOURLY
     Route: 048
     Dates: start: 20181008, end: 20181010
  11. TINZAPARIN [Concomitant]
     Active Substance: TINZAPARIN
     Dosage: UNK
  12. KAY-CEE-L [Concomitant]
     Dosage: UNK
  13. MAGNESIUM ASPARTATE [Concomitant]
     Active Substance: MAGNESIUM ASPARTATE
     Dosage: UNK
  14. METRONIDAZOLE. [Concomitant]
     Active Substance: METRONIDAZOLE
     Indication: DIVERTICULITIS
     Route: 042
  15. PARACETAMOL [Concomitant]
     Active Substance: ACETAMINOPHEN
     Dosage: UNK
  16. CODEINE [Concomitant]
     Active Substance: CODEINE
     Dosage: UNK
  17. METRONIDAZOLE. [Concomitant]
     Active Substance: METRONIDAZOLE
     Indication: DIVERTICULITIS
     Dosage: UNK
     Route: 048

REACTIONS (5)
  - Somnolence [Unknown]
  - Confusional state [Unknown]
  - Loss of consciousness [Unknown]
  - Inappropriate antidiuretic hormone secretion [Recovering/Resolving]
  - Petit mal epilepsy [Unknown]

NARRATIVE: CASE EVENT DATE: 20181008
